APPROVED DRUG PRODUCT: MAGNESIUM SULFATE
Active Ingredient: MAGNESIUM SULFATE
Strength: 5GM/10ML (500MG/ML)
Dosage Form/Route: SOLUTION;INTRAMUSCULAR, INTRAVENOUS
Application: A075151 | Product #001 | TE Code: AP
Applicant: HOSPIRA INC
Approved: Apr 25, 2000 | RLD: No | RS: Yes | Type: RX